FAERS Safety Report 6089569-1 (Version None)
Quarter: 2009Q1

REPORT INFORMATION
  Report Type: 
  Country: None (occurrence: None)
  Receive Date: 20090219
  Receipt Date: 20090219
  Transmission Date: 20090719
  Serious: No
  Sender: FDA-Public Use
  Company Number: None

PATIENT
  Age: 16 Year
  Sex: Male
  Weight: 45.3597 kg

DRUGS (1)
  1. METHAMPHETAMINE HYDROCHLORIDE [Suspect]
     Dosage: 20MG DAY PO
     Route: 048
     Dates: start: 20081007, end: 20081011

REACTIONS (4)
  - AGGRESSION [None]
  - DECREASED APPETITE [None]
  - INSOMNIA [None]
  - IRRITABILITY [None]
